FAERS Safety Report 7709196-7 (Version None)
Quarter: 2011Q3

REPORT INFORMATION
  Report Type: 
  Country: None (occurrence: None)
  Receive Date: 20110825
  Receipt Date: 20110819
  Transmission Date: 20111222
  Serious: Yes (Death, Other)
  Sender: FDA-Public Use
  Company Number: PHEH2011US01674

PATIENT
  Sex: Male

DRUGS (10)
  1. SIMAVASTATIN [Concomitant]
     Dosage: 10 MG
     Dates: start: 20100602
  2. MEGACE [Concomitant]
     Dosage: 10 MG/ML, BID
     Route: 048
     Dates: start: 20110118
  3. EXJADE [Suspect]
     Indication: IRON OVERLOAD
     Dosage: 1000 MG, QD
     Route: 048
     Dates: start: 20110517
  4. FLOMAX [Concomitant]
     Dosage: 0.4 MG
     Dates: start: 20100602
  5. MIRALAX [Concomitant]
     Indication: CONSTIPATION
     Dosage: 17 G
     Dates: start: 20101208
  6. OXYCONTIN [Concomitant]
     Route: 048
     Dates: start: 20110517
  7. AMIODIPINE [Concomitant]
     Dosage: 5 MG
     Dates: start: 20100602
  8. PERCOCET [Concomitant]
     Indication: PAIN
     Route: 048
     Dates: start: 20101208
  9. PRILOSEC [Concomitant]
     Dosage: 40 MG
     Dates: start: 20101228
  10. ALPRAZOLAM [Concomitant]
     Dates: start: 20100602

REACTIONS (16)
  - HYPERTENSION [None]
  - BONE MARROW FAILURE [None]
  - OEDEMA PERIPHERAL [None]
  - DIZZINESS [None]
  - ORTHOSTATIC HYPOTENSION [None]
  - NEOPLASM PROGRESSION [None]
  - SARCOMA METASTATIC [None]
  - ANAEMIA [None]
  - MALIGNANT FIBROUS HISTIOCYTOMA [None]
  - LEUKOPENIA [None]
  - DEATH [None]
  - CONSTIPATION [None]
  - BLOOD ALKALINE PHOSPHATASE INCREASED [None]
  - NEOPLASM MALIGNANT [None]
  - MYELODYSPLASTIC SYNDROME [None]
  - DYSPEPSIA [None]
